FAERS Safety Report 10674806 (Version 2)
Quarter: 2015Q1

REPORT INFORMATION
  Report Type: Spontaneous
  Country: FR (occurrence: FR)
  Receive Date: 20141224
  Receipt Date: 20150107
  Transmission Date: 20150720
  Serious: Yes (Other)
  Sender: FDA-Public Use
  Company Number: FR-JNJFOC-20141209705

PATIENT
  Age: 47 Year
  Sex: Male

DRUGS (1)
  1. STELARA [Suspect]
     Active Substance: USTEKINUMAB
     Indication: PRODUCT USED FOR UNKNOWN INDICATION
     Dosage: STARTED FOR 3-4 YEAR
     Route: 058

REACTIONS (1)
  - Lichen planus [Not Recovered/Not Resolved]
